FAERS Safety Report 7978641-4 (Version None)
Quarter: 2011Q4

REPORT INFORMATION
  Report Type: 
  Country: None (occurrence: None)
  Receive Date: 20111202
  Receipt Date: 20110929
  Transmission Date: 20120403
  Serious: Yes (Other)
  Sender: FDA-Public Use
  Company Number: 2011SP040903

PATIENT
  Age: 17 Year
  Sex: Female

DRUGS (1)
  1. DESOGESTREL AND ETHINYL ESTRADIOL [Suspect]
     Indication: MENSTRUAL DISORDER

REACTIONS (3)
  - OFF LABEL USE [None]
  - CONDITION AGGRAVATED [None]
  - CROHN'S DISEASE [None]
